FAERS Safety Report 23530277 (Version 1)
Quarter: 2024Q1

REPORT INFORMATION
  Report Type: Spontaneous
  Country: CZ (occurrence: CZ)
  Receive Date: 20240216
  Receipt Date: 20240216
  Transmission Date: 20240410
  Serious: Yes (Life-Threatening, Hospitalization, Disabling, Other)
  Sender: FDA-Public Use
  Company Number: CZ-002147023-PHHY2017CZ191344

PATIENT
  Age: 51 Year
  Sex: Female

DRUGS (27)
  1. CHLORPROTHIXENE [Suspect]
     Active Substance: CHLORPROTHIXENE
     Indication: Psychiatric symptom
     Dosage: 50 MG, QD
     Route: 048
  2. CODEINE [Suspect]
     Active Substance: CODEINE
     Indication: Pain
     Route: 048
  3. INDOMETHACIN [Suspect]
     Active Substance: INDOMETHACIN
     Indication: Pain
     Dosage: UNK
     Route: 048
  4. LEVOFLOXACIN [Suspect]
     Active Substance: LEVOFLOXACIN
     Indication: Product used for unknown indication
     Route: 065
  5. MELOXICAM [Suspect]
     Active Substance: MELOXICAM
     Indication: Pain
     Dosage: UNK
     Route: 048
  6. METOCLOPRAMIDE [Suspect]
     Active Substance: METOCLOPRAMIDE
     Indication: Product used for unknown indication
     Dosage: UNK
     Route: 065
  7. MIDAZOLAM [Suspect]
     Active Substance: MIDAZOLAM
     Indication: Myoclonus
     Dosage: 1 DF, 10-15 MG/H
     Route: 065
  8. MIDAZOLAM [Suspect]
     Active Substance: MIDAZOLAM
     Indication: Sedation
     Dosage: 15 MG, QH
     Route: 065
  9. SUFENTANIL [Suspect]
     Active Substance: SUFENTANIL
     Indication: Sedation
     Route: 065
  10. TRAMADOL [Suspect]
     Active Substance: TRAMADOL\TRAMADOL HYDROCHLORIDE
     Indication: Product used for unknown indication
     Dosage: 50 MG
     Route: 065
  11. TRAZODONE [Suspect]
     Active Substance: TRAZODONE HYDROCHLORIDE
     Indication: Mental disorder
     Dosage: 300 MG, QD
     Route: 065
  12. TRAZODONE [Suspect]
     Active Substance: TRAZODONE HYDROCHLORIDE
     Indication: Psychiatric symptom
  13. ACETAMINOPHEN [Concomitant]
     Active Substance: ACETAMINOPHEN
     Indication: Pyrexia
     Dosage: 4 G, QD
     Route: 065
  14. BROMAZEPAM [Concomitant]
     Active Substance: BROMAZEPAM
     Indication: Mental disorder
     Dosage: 2 MG, QD
     Route: 048
  15. BROMAZEPAM [Concomitant]
     Active Substance: BROMAZEPAM
     Indication: Psychiatric symptom
  16. BUDESONIDE [Concomitant]
     Active Substance: BUDESONIDE
     Indication: Asthma
     Dosage: 1 DF,160/4.5 MG
     Route: 055
  17. CISATRACURIUM [Concomitant]
     Active Substance: CISATRACURIUM
     Indication: Product used for unknown indication
     Dosage: UNK
     Route: 065
  18. ESMOLOL [Concomitant]
     Active Substance: ESMOLOL HYDROCHLORIDE
     Indication: Sinus tachycardia
     Route: 065
  19. INDOMETHACIN [Concomitant]
     Active Substance: INDOMETHACIN
     Indication: Product used for unknown indication
     Route: 065
  20. INDOMETHACIN [Concomitant]
     Active Substance: INDOMETHACIN
     Indication: Product used for unknown indication
     Route: 065
  21. IVABRADINE [Concomitant]
     Active Substance: IVABRADINE
     Indication: Sinus tachycardia
     Dosage: 10 MG, QD
     Route: 065
  22. IVABRADINE [Concomitant]
     Active Substance: IVABRADINE
     Dosage: FILM-COATED TABLET
     Route: 048
  23. NOREPINEPHRINE [Concomitant]
     Active Substance: NOREPINEPHRINE
     Indication: Sinus tachycardia
     Route: 065
  24. VORICONAZOLE [Concomitant]
     Active Substance: VORICONAZOLE
     Indication: Pneumonia
     Dosage: UNK
     Route: 065
  25. HYDROXYZINE [Interacting]
     Active Substance: HYDROXYZINE HYDROCHLORIDE
     Indication: Product used for unknown indication
     Dosage: UNK
     Route: 065
  26. PAROXETINE [Interacting]
     Active Substance: PAROXETINE
     Indication: Mental disorder
     Dosage: 60 MG, QD
     Route: 048
  27. ACETAMINOPHEN\TRAMADOL [Interacting]
     Active Substance: ACETAMINOPHEN\TRAMADOL
     Indication: Product used for unknown indication
     Dosage: UNK
     Route: 065

REACTIONS (32)
  - Serotonin syndrome [Unknown]
  - Dyspnoea [Recovered/Resolved with Sequelae]
  - Restlessness [Unknown]
  - Tremor [Unknown]
  - Mydriasis [Recovered/Resolved with Sequelae]
  - Tachycardia [Unknown]
  - Hypertension [Unknown]
  - Sinus tachycardia [Recovered/Resolved with Sequelae]
  - Myoclonus [Unknown]
  - Muscle spasms [Unknown]
  - Agitation [Unknown]
  - Delirium [Recovered/Resolved with Sequelae]
  - Hyperhidrosis [Unknown]
  - Pyrexia [Unknown]
  - Arthralgia [Unknown]
  - Circulatory collapse [Unknown]
  - Depressed level of consciousness [Unknown]
  - Overdose [Not Recovered/Not Resolved]
  - Oliguria [Unknown]
  - Myoglobin blood increased [Unknown]
  - Drug ineffective [Not Recovered/Not Resolved]
  - Drug interaction [Unknown]
  - Intentional product misuse [Not Recovered/Not Resolved]
  - Apallic syndrome [Unknown]
  - Metabolic acidosis [Recovered/Resolved]
  - Pneumonia fungal [Unknown]
  - Leukocytosis [Unknown]
  - Incorrect dose administered [Unknown]
  - Rhabdomyolysis [Unknown]
  - Toxicologic test abnormal [Unknown]
  - Pneumonia [Unknown]
  - Treatment noncompliance [Unknown]
